FAERS Safety Report 9373913 (Version 2)
Quarter: 2013Q4

REPORT INFORMATION
  Report Type: Spontaneous
  Country: IT (occurrence: IT)
  Receive Date: 20130628
  Receipt Date: 20131008
  Transmission Date: 20140711
  Serious: Yes (Other)
  Sender: FDA-Public Use
  Company Number: IT-ROCHE-1241457

PATIENT
  Age: 55 Year
  Sex: Female

DRUGS (2)
  1. OMALIZUMAB [Suspect]
     Indication: ASTHMA
     Route: 065
  2. OMALIZUMAB [Suspect]
     Dosage: RESTARTED
     Route: 065

REACTIONS (5)
  - Pulmonary pneumatocele [Recovering/Resolving]
  - Candida test positive [Unknown]
  - Dyspnoea [Unknown]
  - Wheezing [Unknown]
  - Bronchial obstruction [Unknown]
